FAERS Safety Report 6986881-6 (Version None)
Quarter: 2010Q3

REPORT INFORMATION
  Report Type: 
  Country: None (occurrence: None)
  Receive Date: 20100915
  Receipt Date: 20090817
  Transmission Date: 20110219
  Serious: Yes (Other)
  Sender: FDA-Public Use
  Company Number: US-WYE-H10606609

PATIENT
  Sex: Male
  Weight: 115.77 kg

DRUGS (4)
  1. PRISTIQ [Suspect]
     Route: 048
     Dates: start: 20090601, end: 20090813
  2. PRISTIQ [Suspect]
     Route: 048
     Dates: start: 20090814
  3. DIOVAN [Concomitant]
     Dosage: UNKNOWN DAILY DOSE
     Route: 048
  4. PROVIGIL [Concomitant]
     Dosage: UNKNOWN DAILY DOSE
     Route: 048

REACTIONS (2)
  - MUSCLE TWITCHING [None]
  - SEROTONIN SYNDROME [None]
